FAERS Safety Report 8385078-5 (Version None)
Quarter: 2012Q2

REPORT INFORMATION
  Report Type: 
  Country: None (occurrence: None)
  Receive Date: 20120524
  Receipt Date: 20120510
  Transmission Date: 20120825
  Serious: Yes (Other)
  Sender: FDA-Public Use
  Company Number: CHPA2012US010882

PATIENT
  Age: 23 Year
  Sex: Female

DRUGS (1)
  1. EXCEDRIN (MIGRAINE) [Suspect]
     Indication: MIGRAINE
     Dosage: UNK DF, UNK
     Route: 048

REACTIONS (4)
  - HEADACHE [None]
  - PARAESTHESIA [None]
  - NAUSEA [None]
  - HYPOAESTHESIA [None]
